FAERS Safety Report 18136119 (Version 2)
Quarter: 2020Q3

REPORT INFORMATION
  Report Type: Spontaneous
  Country: IT (occurrence: IT)
  Receive Date: 20200811
  Receipt Date: 20200923
  Transmission Date: 20201103
  Serious: Yes (Hospitalization)
  Sender: FDA-Public Use
  Company Number: IT-BAYER-2020-158923

PATIENT
  Age: 38 Year
  Sex: Female

DRUGS (2)
  1. KYLEENA [Suspect]
     Active Substance: LEVONORGESTREL
     Dosage: 17.5 ?G PER DAY,CONTINUOUSLY
     Route: 015
  2. EUTIROX [Concomitant]
     Active Substance: LEVOTHYROXINE SODIUM

REACTIONS (4)
  - Meningioma [None]
  - Pituitary tumour benign [None]
  - Tinnitus [None]
  - Vaginal haemorrhage [None]

NARRATIVE: CASE EVENT DATE: 20200722
